FAERS Safety Report 14330175 (Version 1)
Quarter: 2017Q4

REPORT INFORMATION
  Report Type: Report from Study
  Country: BE (occurrence: BE)
  Receive Date: 20171227
  Receipt Date: 20171227
  Transmission Date: 20180321
  Serious: Yes (Hospitalization)
  Sender: FDA-Public Use
  Company Number: BE-PFIZER INC-2017333908

PATIENT
  Age: 5 Year
  Sex: Female
  Weight: 21 kg

DRUGS (5)
  1. GEMTUZUMAB OZOGAMICIN [Suspect]
     Active Substance: GEMTUZUMAB OZOGAMICIN
     Indication: ACUTE MYELOID LEUKAEMIA RECURRENT
     Dosage: 3.69 MG, SINGLE
     Dates: start: 20170626, end: 20170626
  2. RANITIDINE. [Concomitant]
     Active Substance: RANITIDINE
     Indication: PROPHYLAXIS
     Dosage: 60 MG, 2X/DAY
     Route: 048
     Dates: start: 20170715, end: 20171005
  3. EUSAPRIM [Concomitant]
     Active Substance: SULFAMETHOXAZOLE\TRIMETHOPRIM
     Indication: PROPHYLAXIS
     Dosage: 200 MG, 2X/DAY (ONLY ON SATURDAY , SUNDAY)
     Route: 048
     Dates: start: 20170722
  4. DIFLUCAN [Concomitant]
     Active Substance: FLUCONAZOLE
     Dosage: 100 MG, 1X/DAY
     Route: 048
     Dates: start: 20170725, end: 20171006
  5. CIPROXIM [Concomitant]
     Active Substance: CIPROFLOXACIN HYDROCHLORIDE
     Dosage: 250 MG, 2X/DAY
     Route: 048
     Dates: start: 20170713, end: 20171007

REACTIONS (1)
  - Herpes zoster [Recovered/Resolved]

NARRATIVE: CASE EVENT DATE: 20170729
